FAERS Safety Report 14859526 (Version 1)
Quarter: 2018Q2

REPORT INFORMATION
  Report Type: Spontaneous
  Country: US (occurrence: US)
  Receive Date: 20180423
  Receipt Date: 20180423
  Transmission Date: 20180711
  Serious: Yes (Life-Threatening)
  Sender: FDA-Public Use
  Company Number: None

PATIENT
  Age: 68 Year
  Sex: Male
  Weight: 72 kg

DRUGS (5)
  1. PLAVIX [Concomitant]
     Active Substance: CLOPIDOGREL BISULFATE
  2. RANEXA [Suspect]
     Active Substance: RANOLAZINE
     Indication: ANGINA PECTORIS
     Dosage: ?          QUANTITY:28 TABLET(S);?
     Route: 048
  3. LIPITOR [Concomitant]
     Active Substance: ATORVASTATIN CALCIUM
  4. VITAMIN D3 [Concomitant]
     Active Substance: CHOLECALCIFEROL
  5. COREG [Concomitant]
     Active Substance: CARVEDILOL

REACTIONS (8)
  - Dyspnoea [None]
  - Chest discomfort [None]
  - Pyrexia [None]
  - Nausea [None]
  - Condition aggravated [None]
  - Blood pressure decreased [None]
  - Syncope [None]
  - Chills [None]

NARRATIVE: CASE EVENT DATE: 20180422
